FAERS Safety Report 8339848-X (Version None)
Quarter: 2012Q2

REPORT INFORMATION
  Report Type: 
  Country: None (occurrence: None)
  Receive Date: 20120507
  Receipt Date: 20120501
  Transmission Date: 20120825
  Serious: Yes (Disabling, Other)
  Sender: FDA-Public Use
  Company Number: US-PFIZER INC-2010054686

PATIENT
  Sex: Male
  Weight: 85.714 kg

DRUGS (13)
  1. TRICOR [Suspect]
     Indication: BLOOD CHOLESTEROL INCREASED
     Dosage: 145 MG, 1X/DAY
     Route: 048
  2. GLUCOTROL [Suspect]
     Indication: DIABETES MELLITUS
     Dosage: 10 MG, DAILY
     Dates: start: 19980101
  3. OMEGA-3 TRIGLYCERIDES [Concomitant]
     Indication: CARDIOVASCULAR EVENT PROPHYLAXIS
     Dosage: 1200 MG, DAILY
     Route: 048
  4. VITAMIN D [Concomitant]
     Dosage: 10000 IU, MONTHLY
  5. GLUCOTROL XL [Concomitant]
     Indication: DIABETES MELLITUS
     Dosage: TWO 10 MG TABLETS DAILY
     Route: 048
  6. LIPITOR [Suspect]
     Indication: CARDIOVASCULAR EVENT PROPHYLAXIS
  7. JANUVIA [Concomitant]
     Indication: DIABETES MELLITUS
     Dosage: UNK
     Route: 048
  8. LIPITOR [Suspect]
     Indication: MYOCARDIAL INFARCTION
  9. TRILIPIX [Suspect]
     Indication: BLOOD CHOLESTEROL INCREASED
     Dosage: 45 MG, 1X/DAY
     Route: 048
  10. ACETYLSALICYLIC ACID [Concomitant]
     Indication: CARDIOVASCULAR EVENT PROPHYLAXIS
     Dosage: 81 MG, DAILY
  11. LIPITOR [Suspect]
     Indication: BLOOD CHOLESTEROL INCREASED
     Dosage: 40 MG, 1X/DAY
     Route: 048
     Dates: start: 19980101
  12. COENZYME Q10 [Concomitant]
     Indication: CARDIOVASCULAR EVENT PROPHYLAXIS
     Dosage: 200 MG, DAILY
  13. CALCIUM CARBONATE/FAMOTIDINE/MAGNESIUM HYDROXIDE [Concomitant]
     Indication: CONSTIPATION PROPHYLAXIS
     Dosage: 100 MG, DAILY

REACTIONS (4)
  - DIABETIC BLINDNESS [None]
  - RENAL FAILURE [None]
  - BLOOD POTASSIUM INCREASED [None]
  - THYROID DISORDER [None]
